FAERS Safety Report 12521406 (Version 1)
Quarter: 2016Q3

REPORT INFORMATION
  Report Type: Spontaneous
  Country: BR (occurrence: BR)
  Receive Date: 20160701
  Receipt Date: 20160701
  Transmission Date: 20161109
  Serious: Yes (Other)
  Sender: FDA-Public Use
  Company Number: BR-SUN PHARMACEUTICAL INDUSTRIES LTD-2016R5-118996

PATIENT
  Age: 57 Year
  Sex: Female
  Weight: 56 kg

DRUGS (2)
  1. VENLAFAXINE [Suspect]
     Active Substance: VENLAFAXINE HYDROCHLORIDE
     Indication: FEELING HOT
     Dosage: 75 MG, QD
     Route: 048
     Dates: start: 20160615, end: 20160615
  2. TAXOFEN [Concomitant]
     Indication: BREAST CANCER
     Dosage: 20 MG, QD
     Route: 048

REACTIONS (14)
  - Dizziness [Recovered/Resolved]
  - Swollen tongue [Recovered/Resolved]
  - Abdominal pain [Recovered/Resolved]
  - Headache [Recovering/Resolving]
  - Nausea [Recovering/Resolving]
  - Abdominal pain upper [Recovered/Resolved]
  - Vomiting [Recovered/Resolved]
  - Mental impairment [Recovered/Resolved]
  - Tremor [Recovered/Resolved]
  - Off label use [Recovered/Resolved]
  - Feeling hot [Recovered/Resolved]
  - Dysgeusia [Recovered/Resolved]
  - Peripheral swelling [Recovered/Resolved]
  - Tachycardia [Recovered/Resolved]

NARRATIVE: CASE EVENT DATE: 20160615
